FAERS Safety Report 7178743-9 (Version None)
Quarter: 2010Q4

REPORT INFORMATION
  Report Type: 
  Country: None (occurrence: None)
  Receive Date: 20101209
  Receipt Date: 20101126
  Transmission Date: 20110411
  Serious: Yes (Other)
  Sender: FDA-Public Use
  Company Number: 021987

PATIENT
  Sex: Male

DRUGS (6)
  1. VIMPAT [Suspect]
     Indication: CONVULSION
     Dosage: (150 MG BID ORAL), (REDUCED DOSE ORAL)
     Route: 048
     Dates: start: 20100325
  2. VIMPAT [Suspect]
     Indication: EPILEPSY
     Dosage: (150 MG BID ORAL), (REDUCED DOSE ORAL)
     Route: 048
     Dates: start: 20100325
  3. VIMPAT [Suspect]
     Indication: CONVULSION
     Dosage: (150 MG BID ORAL), (REDUCED DOSE ORAL)
     Route: 048
     Dates: start: 20100801
  4. VIMPAT [Suspect]
     Indication: EPILEPSY
     Dosage: (150 MG BID ORAL), (REDUCED DOSE ORAL)
     Route: 048
     Dates: start: 20100801
  5. LAMOTRIGINE [Concomitant]
  6. VALPROATE SODIUM [Concomitant]

REACTIONS (6)
  - BALANCE DISORDER [None]
  - CONDITION AGGRAVATED [None]
  - DIZZINESS [None]
  - DRUG INEFFECTIVE [None]
  - FALL [None]
  - HEAD INJURY [None]
